FAERS Safety Report 18028722 (Version 1)
Quarter: 2020Q3

REPORT INFORMATION
  Report Type: Spontaneous
  Country: US (occurrence: US)
  Receive Date: 20200715
  Receipt Date: 20200715
  Transmission Date: 20201103
  Serious: Yes (Other)
  Sender: FDA-Public Use
  Company Number: US-009507513-2007USA004916

PATIENT
  Sex: Female
  Weight: 67.13 kg

DRUGS (1)
  1. NEXPLANON [Suspect]
     Active Substance: ETONOGESTREL
     Dosage: 1 IMPLANT/3 YEARS (OVER 4 YEARS AGO) IN LEFT ARM
     Route: 059

REACTIONS (3)
  - Complication associated with device [Recovered/Resolved]
  - Incorrect product administration duration [Unknown]
  - Device dislocation [Not Recovered/Not Resolved]
